FAERS Safety Report 10869072 (Version 1)
Quarter: 2015Q1

REPORT INFORMATION
  Report Type: Spontaneous
  Country: US (occurrence: None)
  Receive Date: 20150220
  Receipt Date: 20150220
  Transmission Date: 20150721
  Serious: No
  Sender: FDA-Public Use
  Company Number: None

PATIENT
  Age: 57 Year
  Sex: Female

DRUGS (6)
  1. AMPYRA [Suspect]
     Active Substance: DALFAMPRIDINE
     Indication: MULTIPLE SCLEROSIS
     Route: 048
     Dates: start: 20100620
  2. AMPYRA [Concomitant]
     Active Substance: DALFAMPRIDINE
  3. NUVIGIL [Concomitant]
     Active Substance: ARMODAFINIL
  4. COPAXONE [Concomitant]
     Active Substance: GLATIRAMER ACETATE
  5. LISINOPRIL. [Concomitant]
     Active Substance: LISINOPRIL
  6. NEURONTIN [Concomitant]
     Active Substance: GABAPENTIN

REACTIONS (1)
  - Urinary tract infection [None]

NARRATIVE: CASE EVENT DATE: 20150128
